FAERS Safety Report 9980677 (Version 2)
Quarter: 2014Q1

REPORT INFORMATION
  Report Type: Report from Study
  Country: US (occurrence: US)
  Receive Date: 20140307
  Receipt Date: 20140321
  Transmission Date: 20141002
  Serious: Yes (Hospitalization)
  Sender: FDA-Public Use
  Company Number: US-ROCHE-1356039

PATIENT
  Age: 60 Year
  Sex: Female

DRUGS (1)
  1. VALCYTE [Suspect]
     Indication: BONE MARROW TRANSPLANT
     Route: 048
     Dates: start: 20140221

REACTIONS (7)
  - Pyrexia [Unknown]
  - Cytomegalovirus infection [Unknown]
  - Nausea [Unknown]
  - Dizziness [Unknown]
  - Frequent bowel movements [Unknown]
  - Laboratory test abnormal [Unknown]
  - Off label use [Unknown]
